FAERS Safety Report 22214071 (Version 1)
Quarter: 2023Q2

REPORT INFORMATION
  Report Type: Spontaneous
  Country: US (occurrence: US)
  Receive Date: 20230414
  Receipt Date: 20230414
  Transmission Date: 20230721
  Serious: Yes (Death, Other)
  Sender: FDA-Public Use
  Company Number: US-MALLINCKRODT-MNK202301032

PATIENT
  Age: 22 Year

DRUGS (11)
  1. NITRIC OXIDE [Suspect]
     Active Substance: NITRIC OXIDE
     Indication: Shock haemorrhagic
     Dosage: 30 PPM
     Dates: start: 20230331, end: 20230401
  2. NITRIC OXIDE [Suspect]
     Active Substance: NITRIC OXIDE
     Indication: Multiple organ dysfunction syndrome
  3. NITRIC OXIDE [Suspect]
     Active Substance: NITRIC OXIDE
     Indication: Respiratory failure
  4. NITRIC OXIDE [Suspect]
     Active Substance: NITRIC OXIDE
     Indication: Acute kidney injury
  5. NITRIC OXIDE [Suspect]
     Active Substance: NITRIC OXIDE
     Indication: Subarachnoid haemorrhage
  6. NITRIC OXIDE [Suspect]
     Active Substance: NITRIC OXIDE
     Indication: Acute respiratory failure
  7. NITRIC OXIDE [Suspect]
     Active Substance: NITRIC OXIDE
     Indication: Splenic injury
  8. NITRIC OXIDE [Suspect]
     Active Substance: NITRIC OXIDE
     Indication: Renal injury
  9. NITRIC OXIDE [Suspect]
     Active Substance: NITRIC OXIDE
     Indication: Diaphragmatic injury
  10. NITRIC OXIDE [Suspect]
     Active Substance: NITRIC OXIDE
     Indication: Pancreatic injury
  11. NITRIC OXIDE [Suspect]
     Active Substance: NITRIC OXIDE
     Indication: Acute kidney injury

REACTIONS (5)
  - Cardiac arrest [Fatal]
  - Oxygen saturation decreased [Unknown]
  - Device dislocation [Unknown]
  - Product use issue [Unknown]
  - Product use in unapproved indication [Unknown]

NARRATIVE: CASE EVENT DATE: 20230101
